FAERS Safety Report 7765860-5 (Version None)
Quarter: 2011Q3

REPORT INFORMATION
  Report Type: 
  Country: None (occurrence: None)
  Receive Date: 20110921
  Receipt Date: 20110916
  Transmission Date: 20111222
  Serious: Yes (Other)
  Sender: FDA-Public Use
  Company Number: NL-ABBOTT-11P-114-0854139-00

PATIENT
  Sex: Female
  Weight: 94 kg

DRUGS (5)
  1. TAMSULOSIN HCL [Concomitant]
     Indication: PROSTATE CANCER
     Dosage: 1/1 TIME DAILY
     Route: 065
     Dates: start: 20070101
  2. MONO-CODOCARD [Concomitant]
     Indication: ANGIOPATHY
     Dosage: 1/1 TIME DAILY
     Route: 065
  3. LOSARTAN POTASSIUM [Concomitant]
     Indication: HYPERTENSION
     Dosage: NR/1 TIME DAILY
     Route: 065
  4. LEUPROLIDE ACETATE [Suspect]
     Indication: PROSTATE CANCER
     Dates: start: 20091201
  5. AMLODIPINE [Concomitant]
     Indication: HYPERTENSION
     Dosage: 1/1 TIME DAILY
     Route: 065

REACTIONS (3)
  - VASCULAR GRAFT [None]
  - HOT FLUSH [None]
  - FATIGUE [None]
